FAERS Safety Report 19002125 (Version 1)
Quarter: 2021Q1

REPORT INFORMATION
  Report Type: Spontaneous
  Country: US (occurrence: US)
  Receive Date: 20210312
  Receipt Date: 20210312
  Transmission Date: 20210420
  Serious: Yes (Hospitalization)
  Sender: FDA-Public Use
  Company Number: None

PATIENT
  Age: 57 Year
  Sex: Male
  Weight: 60.75 kg

DRUGS (3)
  1. ARIPIPRAZOLE 15 MG [Suspect]
     Active Substance: ARIPIPRAZOLE
  2. ARIPIPRAZOLE 10 MG [Suspect]
     Active Substance: ARIPIPRAZOLE
     Indication: SCHIZOAFFECTIVE DISORDER
     Dates: start: 20210227, end: 20210312
  3. ARIPIPRAZOLE 25 MG [Suspect]
     Active Substance: ARIPIPRAZOLE

REACTIONS (8)
  - Movement disorder [None]
  - Hyperhidrosis [None]
  - Dizziness [None]
  - Lethargy [None]
  - Musculoskeletal stiffness [None]
  - Cold sweat [None]
  - Flatulence [None]
  - Obsessive-compulsive disorder [None]

NARRATIVE: CASE EVENT DATE: 20210227
